FAERS Safety Report 23811446 (Version 2)
Quarter: 2024Q2

REPORT INFORMATION
  Report Type: Spontaneous
  Country: UA (occurrence: UA)
  Receive Date: 20240503
  Receipt Date: 20240513
  Transmission Date: 20240715
  Serious: Yes (Life-Threatening, Hospitalization, Other)
  Sender: FDA-Public Use
  Company Number: UA-ALKEM LABORATORIES LIMITED-UA-ALKEM-2024-08536

PATIENT
  Sex: Male

DRUGS (1)
  1. IBUPROFEN [Suspect]
     Active Substance: IBUPROFEN
     Indication: Product used for unknown indication
     Dosage: UNK
     Route: 064

REACTIONS (5)
  - Ductus arteriosus premature closure [Recovering/Resolving]
  - Tricuspid valve incompetence [Recovering/Resolving]
  - Neonatal pulmonary hypertension [Recovering/Resolving]
  - Right ventricular hypertrophy [Recovering/Resolving]
  - Foetal exposure during pregnancy [Unknown]
